FAERS Safety Report 5952308-6 (Version None)
Quarter: 2008Q4

REPORT INFORMATION
  Report Type: 
  Country: None (occurrence: None)
  Receive Date: 20081113
  Receipt Date: 20081103
  Transmission Date: 20090506
  Serious: Yes (Other)
  Sender: FDA-Public Use
  Company Number: NL-WATSON-2008-06499

PATIENT
  Age: 53 Year
  Sex: Male

DRUGS (2)
  1. NAPROXEN SODIUM [Suspect]
     Indication: PAIN
     Dosage: 500 MG, BID
  2. SERTRALINE HYDROCHLORIDE [Suspect]
     Indication: MAJOR DEPRESSION
     Dosage: 100 MG, DAILY

REACTIONS (2)
  - POST PROCEDURAL HAEMORRHAGE [None]
  - POTENTIATING DRUG INTERACTION [None]
